FAERS Safety Report 4850221-9 (Version None)
Quarter: 2005Q4

REPORT INFORMATION
  Report Type: 
  Country: None (occurrence: None)
  Receive Date: 20051123
  Receipt Date: 20050829
  Transmission Date: 20060501
  Serious: Yes (Other)
  Sender: FDA-Public Use
  Company Number: 2005115000

PATIENT
  Age: 58 Year
  Sex: Male
  Weight: 115.6672 kg

DRUGS (2)
  1. LIPITOR [Suspect]
     Indication: MIXED HYPERLIPIDAEMIA
     Dosage: 10 MG (10 MG, 1 IN 1 D)
  2. TRICOR [Suspect]
     Indication: HYPERCHOLESTEROLAEMIA
     Dosage: 145 MG (145 MG, 1 IN 1 D)

REACTIONS (6)
  - BLOOD TRIGLYCERIDES INCREASED [None]
  - LIPOPROTEIN (A) ABNORMAL [None]
  - MUSCLE SPASMS [None]
  - NEPHROLITHIASIS [None]
  - PAIN [None]
  - PAIN IN EXTREMITY [None]
